FAERS Safety Report 4727693-3 (Version None)
Quarter: 2005Q3

REPORT INFORMATION
  Report Type: 
  Country: None (occurrence: None)
  Receive Date: 20050725
  Receipt Date: 20050429
  Transmission Date: 20060218
  Serious: No
  Sender: FDA-Public Use
  Company Number: USA050496919

PATIENT
  Age: 60 Year
  Sex: Male

DRUGS (5)
  1. STRATTERA [Suspect]
     Indication: ATTENTION DEFICIT/HYPERACTIVITY DISORDER
     Dosage: 25 MG DAY
     Dates: start: 20050427, end: 20050428
  2. PAXIL [Concomitant]
  3. HYDROCHLOROTHIAZIDE [Concomitant]
  4. ACE INHIBITOR [Concomitant]
  5. CA CHANNEL BLOCKER [Concomitant]

REACTIONS (4)
  - DIZZINESS [None]
  - DYSPNOEA [None]
  - FEELING ABNORMAL [None]
  - HYPOTENSION [None]
